FAERS Safety Report 12203595 (Version 1)
Quarter: 2016Q1

REPORT INFORMATION
  Report Type: Spontaneous
  Country: US (occurrence: None)
  Receive Date: 20160322
  Receipt Date: 20160322
  Transmission Date: 20160526
  Serious: No
  Sender: FDA-Public Use
  Company Number: None

PATIENT
  Age: 88 Year
  Sex: Male
  Weight: 60 kg

DRUGS (2)
  1. KCENTRA [Suspect]
     Active Substance: COAGULATION FACTOR IX HUMAN\COAGULATION FACTOR VII HUMAN\COAGULATION FACTOR X HUMAN\PROTEIN C\PROTEIN S HUMAN\PROTHROMBIN
     Indication: OFF LABEL USE
     Dosage: 3000 UNITS (50 UNIT/KG) STAT ONE TIME INTRAVENOUS
     Route: 042
     Dates: start: 20160304, end: 20160304
  2. KCENTRA [Suspect]
     Active Substance: COAGULATION FACTOR IX HUMAN\COAGULATION FACTOR VII HUMAN\COAGULATION FACTOR X HUMAN\PROTEIN C\PROTEIN S HUMAN\PROTHROMBIN
     Indication: PROCOAGULANT THERAPY
     Dosage: 3000 UNITS (50 UNIT/KG) STAT ONE TIME INTRAVENOUS
     Route: 042
     Dates: start: 20160304, end: 20160304

REACTIONS (1)
  - Cerebellar infarction [None]

NARRATIVE: CASE EVENT DATE: 20160305
